FAERS Safety Report 7741988-0 (Version None)
Quarter: 2011Q3

REPORT INFORMATION
  Report Type: 
  Country: None (occurrence: None)
  Receive Date: 20110912
  Receipt Date: 20110906
  Transmission Date: 20111222
  Serious: Yes (Death)
  Sender: FDA-Public Use
  Company Number: PT-JNJFOC-20110901694

PATIENT
  Sex: Male
  Weight: 75 kg

DRUGS (2)
  1. HALDOL [Concomitant]
     Route: 048
     Dates: start: 20090427
  2. RISPERDAL CONSTA [Suspect]
     Indication: SCHIZOPHRENIA, DISORGANISED TYPE
     Route: 030
     Dates: start: 20070920

REACTIONS (1)
  - COMPLETED SUICIDE [None]
